FAERS Safety Report 9970325 (Version 2)
Quarter: 2014Q1

REPORT INFORMATION
  Report Type: Spontaneous
  Country: FR (occurrence: FR)
  Receive Date: 20140306
  Receipt Date: 20140306
  Transmission Date: 20141002
  Serious: Yes (Hospitalization, Other)
  Sender: FDA-Public Use
  Company Number: FR-TEVA-432325ISR

PATIENT
  Age: 41 Year
  Sex: Male
  Weight: 65 kg

DRUGS (5)
  1. COPAXONE [Suspect]
     Dosage: INJECTION, DEPTH AT 8 AND 10 MM
     Route: 058
     Dates: start: 20080601
  2. CYMBALTA [Concomitant]
  3. SERESTA [Concomitant]
     Dosage: 1 IN THE EVENING
  4. DEROXAT 10 MG [Concomitant]
     Dosage: .5 TABLET DAILY;
     Dates: start: 20140114
  5. KEPPRA 500MG [Concomitant]
     Indication: EPILEPSY
     Dosage: 4 TABLET DAILY; 2 IN THE MORNING AND 2 IN THE EVENING
     Dates: start: 201310

REACTIONS (14)
  - Multiple sclerosis relapse [Unknown]
  - Epilepsy [Recovered/Resolved]
  - Fall [Unknown]
  - Jaw fracture [Unknown]
  - Fatigue [Recovered/Resolved]
  - Abasia [Recovered/Resolved]
  - Depressed mood [Not Recovered/Not Resolved]
  - Weight decreased [Unknown]
  - Sensory loss [Unknown]
  - Asthenia [Unknown]
  - Tinnitus [Unknown]
  - Dysuria [Unknown]
  - Constipation [Unknown]
  - Cough [Unknown]
